FAERS Safety Report 11632034 (Version 2)
Quarter: 2016Q1

REPORT INFORMATION
  Report Type: Spontaneous
  Country: US (occurrence: US)
  Receive Date: 20151015
  Receipt Date: 20160106
  Transmission Date: 20160525
  Serious: Yes (Hospitalization)
  Sender: FDA-Public Use
  Company Number: PHEH2015US020418

PATIENT
  Age: 16 Year
  Sex: Male
  Weight: 54.7 kg

DRUGS (3)
  1. EXJADE [Suspect]
     Active Substance: DEFERASIROX
     Indication: SICKLE CELL ANAEMIA
     Dosage: 1750 MG, UNK
     Route: 048
  2. STIMATE [Concomitant]
     Active Substance: DESMOPRESSIN ACETATE
     Indication: VON WILLEBRAND^S DISEASE
     Route: 065
  3. WILATE [Concomitant]
     Active Substance: HUMAN COAGULATION FACTOR VIII/VON WILLEBRAND FACTOR COMPLEX
     Indication: VON WILLEBRAND^S DISEASE
     Route: 065

REACTIONS (7)
  - Flank pain [Unknown]
  - Haematuria [Recovered/Resolved]
  - Dysuria [Unknown]
  - Arthralgia [Unknown]
  - Renal papillary necrosis [Recovered/Resolved]
  - Haematuria [Recovered/Resolved]
  - Chromaturia [Unknown]

NARRATIVE: CASE EVENT DATE: 20150402
